FAERS Safety Report 9347322 (Version 2)
Quarter: 2014Q2

REPORT INFORMATION
  Report Type: Spontaneous
  Country: US (occurrence: US)
  Receive Date: 20130613
  Receipt Date: 20140513
  Transmission Date: 20141212
  Serious: Yes (Other)
  Sender: FDA-Public Use
  Company Number: US-LUNDBECK-DKLU1091504

PATIENT
  Sex: Female

DRUGS (5)
  1. ONFI [Suspect]
     Indication: LENNOX-GASTAUT SYNDROME
     Route: 048
  2. ONFI [Suspect]
     Route: 048
  3. BANZEL [Concomitant]
     Indication: PRODUCT USED FOR UNKNOWN INDICATION
  4. LAMICTAL [Concomitant]
     Indication: PRODUCT USED FOR UNKNOWN INDICATION
  5. VIMPAT [Concomitant]
     Indication: PRODUCT USED FOR UNKNOWN INDICATION

REACTIONS (2)
  - Urinary retention [Recovered/Resolved]
  - Urinary tract infection [Unknown]
